FAERS Safety Report 8058608-0 (Version None)
Quarter: 2012Q1

REPORT INFORMATION
  Report Type: 
  Country: None (occurrence: None)
  Receive Date: 20120120
  Receipt Date: 20120116
  Transmission Date: 20120608
  Serious: Yes (Other)
  Sender: FDA-Public Use
  Company Number: CA-JNJFOC-20120106725

PATIENT
  Age: 30 Year
  Sex: Female

DRUGS (1)
  1. TRI-CYCLEN 28 [Suspect]
     Indication: PRODUCT USED FOR UNKNOWN INDICATION
     Route: 065

REACTIONS (2)
  - MENORRHAGIA [None]
  - UTERINE LEIOMYOMA [None]
